FAERS Safety Report 15412868 (Version 1)
Quarter: 2018Q3

REPORT INFORMATION
  Report Type: Spontaneous
  Country: JP (occurrence: JP)
  Receive Date: 20180921
  Receipt Date: 20180921
  Transmission Date: 20181010
  Serious: Yes (Death)
  Sender: FDA-Public Use
  Company Number: JP-PFIZER INC-2018381250

PATIENT
  Age: 49 Year
  Sex: Female

DRUGS (4)
  1. MICONAZOLE. [Suspect]
     Active Substance: MICONAZOLE
     Indication: MENINGITIS FUNGAL
     Dosage: UNK
  2. TERBINAFINE HYDROCHLORIDE. [Suspect]
     Active Substance: TERBINAFINE HYDROCHLORIDE
     Dosage: UNK
  3. VORICONAZOLE. [Suspect]
     Active Substance: VORICONAZOLE
     Indication: MENINGITIS FUNGAL
     Dosage: UNK
  4. MEROPENEM. [Suspect]
     Active Substance: MEROPENEM
     Dosage: UNK

REACTIONS (4)
  - Meningitis enterococcal [Fatal]
  - Multiple organ dysfunction syndrome [Fatal]
  - Therapy non-responder [Fatal]
  - Meningitis candida [Fatal]
